FAERS Safety Report 16094525 (Version 1)
Quarter: 2019Q2

REPORT INFORMATION
  Report Type: Spontaneous
  Country: US (occurrence: US)
  Receive Date: 20190319
  Receipt Date: 20190319
  Transmission Date: 20190711
  Serious: No
  Sender: FDA-Public Use
  Company Number: None

PATIENT
  Age: 39 Year
  Sex: Male

DRUGS (1)
  1. NINLARO [Suspect]
     Active Substance: IXAZOMIB CITRATE
     Indication: PLASMA CELL MYELOMA
     Dosage: ?          OTHER FREQUENCY:WEEKLY FOR 3 WEEKS;?
     Route: 048

REACTIONS (4)
  - Nausea [None]
  - Muscular weakness [None]
  - Upper respiratory tract infection [None]
  - Product dose omission [None]

NARRATIVE: CASE EVENT DATE: 20190304
